FAERS Safety Report 9610878 (Version 2)
Quarter: 2013Q4

REPORT INFORMATION
  Report Type: Report from Study
  Country: US (occurrence: US)
  Receive Date: 20131009
  Receipt Date: 20131028
  Transmission Date: 20140711
  Serious: Yes (Other)
  Sender: FDA-Public Use
  Company Number: US-ROCHE-1286589

PATIENT
  Sex: Female
  Weight: 77.18 kg

DRUGS (9)
  1. XOLAIR [Suspect]
     Indication: PRODUCT USED FOR UNKNOWN INDICATION
     Route: 058
     Dates: start: 20120329, end: 20131002
  2. AMARYL [Concomitant]
     Route: 048
  3. SINGULAIR [Concomitant]
     Route: 048
  4. ATACAND [Concomitant]
     Route: 048
  5. CARDIZEM [Concomitant]
     Route: 048
  6. COUMADIN [Concomitant]
     Route: 048
  7. LASIX [Concomitant]
     Route: 048
  8. SYNTHROID [Concomitant]
     Route: 048
  9. ADVAIR [Concomitant]
     Dosage: 230/21 MCG / 2 PUFFS TWICE DAILY
     Route: 065

REACTIONS (2)
  - Bronchospasm [Recovered/Resolved]
  - Rash [Recovered/Resolved]
